FAERS Safety Report 13297141 (Version 1)
Quarter: 2017Q1

REPORT INFORMATION
  Report Type: Spontaneous
  Country: US (occurrence: US)
  Receive Date: 20170303
  Receipt Date: 20170303
  Transmission Date: 20170428
  Serious: No
  Sender: FDA-Public Use
  Company Number: None

PATIENT
  Sex: Female

DRUGS (1)
  1. IBRANCE [Suspect]
     Active Substance: PALBOCICLIB
     Indication: BREAST CANCER FEMALE
     Dosage: 1 CAPSULE DAILY WITH FOOD PO
     Route: 048
     Dates: start: 20170109

REACTIONS (4)
  - Muscular weakness [None]
  - Paraesthesia [None]
  - Gait disturbance [None]
  - Erythema [None]
